FAERS Safety Report 12003263 (Version 2)
Quarter: 2018Q1

REPORT INFORMATION
  Report Type: Report from Study
  Country: None (occurrence: BR)
  Receive Date: 20160204
  Receipt Date: 20180115
  Transmission Date: 20180508
  Serious: Yes (Hospitalization, Other)
  Sender: FDA-Public Use
  Company Number: BR-ABBVIE-16K-020-1549477-00

PATIENT
  Sex: Male
  Weight: 77 kg

DRUGS (8)
  1. HUMIRA [Suspect]
     Active Substance: ADALIMUMAB
     Indication: CROHN^S DISEASE
     Route: 058
     Dates: start: 20140728
  2. DIPYRONE [Concomitant]
     Active Substance: DIPYRONE
     Indication: ABDOMINAL PAIN
  3. HUMIRA [Suspect]
     Active Substance: ADALIMUMAB
     Route: 058
  4. HUMIRA [Suspect]
     Active Substance: ADALIMUMAB
     Route: 058
     Dates: end: 20160114
  5. AZATHIOPRINE. [Concomitant]
     Active Substance: AZATHIOPRINE
     Indication: CROHN^S DISEASE
     Route: 048
  6. BUSCOPAN [Concomitant]
     Active Substance: BUTYLSCOPOLAMINE BROMIDE
     Indication: ABDOMINAL PAIN
  7. DIPYRONE [Concomitant]
     Active Substance: DIPYRONE
     Indication: PAIN
  8. BUSCOPAN [Concomitant]
     Active Substance: BUTYLSCOPOLAMINE BROMIDE
     Indication: PAIN

REACTIONS (3)
  - Groin abscess [Unknown]
  - Umbilical discharge [Not Recovered/Not Resolved]
  - Cyst [Not Recovered/Not Resolved]

NARRATIVE: CASE EVENT DATE: 2015
